FAERS Safety Report 6569418-5 (Version None)
Quarter: 2010Q1

REPORT INFORMATION
  Report Type: 
  Country: None (occurrence: None)
  Receive Date: 20100202
  Receipt Date: 20100202
  Transmission Date: 20100710
  Serious: Yes (Other)
  Sender: FDA-Public Use
  Company Number: None

PATIENT
  Age: 35 Year
  Sex: Female
  Weight: 61.2356 kg

DRUGS (2)
  1. LEVAQUIN [Suspect]
     Indication: PNEUMONIA PRIMARY ATYPICAL
     Dosage: 1 TABLET DAILY
     Dates: start: 20100125, end: 20100128
  2. LEVAQUIN [Suspect]
     Indication: SINUSITIS
     Dosage: 1 TABLET DAILY
     Dates: start: 20100125, end: 20100128

REACTIONS (10)
  - ANXIETY [None]
  - CHEST PAIN [None]
  - CHILLS [None]
  - CRYING [None]
  - DEPRESSION [None]
  - HYPERHIDROSIS [None]
  - INSOMNIA [None]
  - NERVOUSNESS [None]
  - PANIC ATTACK [None]
  - TREMOR [None]
